FAERS Safety Report 8017809-8 (Version None)
Quarter: 2012Q1

REPORT INFORMATION
  Report Type: 
  Country: None (occurrence: None)
  Receive Date: 20120103
  Receipt Date: 20111227
  Transmission Date: 20120608
  Serious: No
  Sender: FDA-Public Use
  Company Number: US-PFIZER INC-2011314134

PATIENT
  Sex: Male
  Weight: 86.168 kg

DRUGS (1)
  1. LATANOPROST [Suspect]
     Indication: OPEN ANGLE GLAUCOMA
     Dosage: 1 GTT, DAILY
     Route: 047
     Dates: start: 20110801, end: 20110101

REACTIONS (1)
  - DRUG INEFFECTIVE [None]
